FAERS Safety Report 5878607-4 (Version None)
Quarter: 2008Q3

REPORT INFORMATION
  Report Type: 
  Country: None (occurrence: None)
  Receive Date: 20080909
  Receipt Date: 20080825
  Transmission Date: 20090109
  Serious: Yes (Death, Life-Threatening)
  Sender: FDA-Public Use
  Company Number: 001304

PATIENT
  Age: 63 Year
  Sex: Male

DRUGS (4)
  1. BUSULFEX [Suspect]
     Indication: STEM CELL TRANSPLANT
     Dosage: 30 ML, DAILY DOSE INTRAVENOUS
     Route: 042
     Dates: start: 20070817, end: 20070818
  2. ATG (ANTILYMPHOCYTE IMMUNOGLOBULIN (HORSE)) [Concomitant]
  3. MELPHALAN (MELPHALAN) [Concomitant]
  4. TACROLIMUS [Concomitant]

REACTIONS (12)
  - ANOREXIA [None]
  - DIARRHOEA [None]
  - GRAFT VERSUS HOST DISEASE [None]
  - HEADACHE [None]
  - MALAISE [None]
  - NAUSEA [None]
  - OEDEMA [None]
  - PAIN IN EXTREMITY [None]
  - PNEUMONIA [None]
  - PYREXIA [None]
  - SEPSIS [None]
  - VOMITING [None]
